FAERS Safety Report 7675697-3 (Version None)
Quarter: 2011Q3

REPORT INFORMATION
  Report Type: 
  Country: None (occurrence: None)
  Receive Date: 20110810
  Receipt Date: 20110802
  Transmission Date: 20111222
  Serious: Yes (Other)
  Sender: FDA-Public Use
  Company Number: US-ASTRAZENECA-2011SE46181

PATIENT
  Age: 1 Year
  Sex: Female

DRUGS (1)
  1. SEROQUEL [Suspect]
     Dosage: BID
     Route: 048

REACTIONS (2)
  - DEVELOPMENTAL DELAY [None]
  - CONVULSION [None]
